FAERS Safety Report 5530368-4 (Version None)
Quarter: 2007Q4

REPORT INFORMATION
  Report Type: 
  Country: None (occurrence: None)
  Receive Date: 20071130
  Receipt Date: 20071120
  Transmission Date: 20080405
  Serious: Yes (Hospitalization, Other)
  Sender: FDA-Public Use
  Company Number: BE-ROCHE-532991

PATIENT
  Sex: Male

DRUGS (1)
  1. ROACCUTANE [Suspect]
     Indication: ACNE
     Dosage: DOSAGE REPORTED: DAILY
     Route: 048
     Dates: start: 20071001

REACTIONS (4)
  - ERECTILE DYSFUNCTION [None]
  - MALAISE [None]
  - MYALGIA [None]
  - VENOUS THROMBOSIS LIMB [None]
